FAERS Safety Report 16907393 (Version 2)
Quarter: 2019Q4

REPORT INFORMATION
  Report Type: Spontaneous
  Country: US (occurrence: US)
  Receive Date: 20191011
  Receipt Date: 20191018
  Transmission Date: 20200122
  Serious: No
  Sender: FDA-Public Use
  Company Number: US-BEH-2019107893

PATIENT
  Age: 42 Year
  Sex: Female

DRUGS (3)
  1. HIZENTRA [Suspect]
     Active Substance: HUMAN IMMUNOGLOBULIN G
     Dosage: 10 GRAM, TOT
     Route: 058
     Dates: start: 20191005, end: 20191005
  2. HIZENTRA [Suspect]
     Active Substance: HUMAN IMMUNOGLOBULIN G
     Dosage: 0.2 GRAM PER MILLILITRE
     Route: 058
     Dates: start: 20190528
  3. HIZENTRA [Suspect]
     Active Substance: HUMAN IMMUNOGLOBULIN G
     Indication: DERMATOMYOSITIS
     Dosage: 10 GRAM, BIW
     Route: 058
     Dates: start: 20170922

REACTIONS (9)
  - Infusion site warmth [Unknown]
  - Injection site pain [Unknown]
  - Infusion site swelling [Unknown]
  - Injection site erythema [Unknown]
  - No adverse event [Unknown]
  - Rash [Unknown]
  - Product use in unapproved indication [Unknown]
  - Headache [Unknown]
  - Urticaria [Unknown]

NARRATIVE: CASE EVENT DATE: 20191005
